FAERS Safety Report 5678052-0 (Version None)
Quarter: 2008Q1

REPORT INFORMATION
  Report Type: 
  Country: None (occurrence: None)
  Receive Date: 20080319
  Receipt Date: 20080226
  Transmission Date: 20080703
  Serious: Yes (Other)
  Sender: FDA-Public Use
  Company Number: 2008S1003630

PATIENT
  Age: 45 Year
  Sex: Male

DRUGS (3)
  1. BLEOMYCIN SULFATE [Suspect]
     Indication: PINEAL PARENCHYMAL NEOPLASM MALIGNANT
  2. ETOPOSIE (ETOPOSIDE) [Suspect]
     Indication: PINEAL PARENCHYMAL NEOPLASM MALIGNANT
  3. CISPLATIN [Suspect]
     Indication: PINEAL PARENCHYMAL NEOPLASM MALIGNANT

REACTIONS (6)
  - BLINDNESS [None]
  - HERPES SIMPLEX [None]
  - MENINGOENCEPHALITIS HERPETIC [None]
  - NECROTISING RETINITIS [None]
  - TUMOUR LYSIS SYNDROME [None]
  - VITREOUS DISORDER [None]
